FAERS Safety Report 21305601 (Version 2)
Quarter: 2022Q3

REPORT INFORMATION
  Report Type: Spontaneous
  Country: US (occurrence: US)
  Receive Date: 20220908
  Receipt Date: 20220915
  Transmission Date: 20221026
  Serious: Yes (Hospitalization, Other)
  Sender: FDA-Public Use
  Company Number: US-MLMSERVICE-20220823-3750745-1

PATIENT
  Sex: Male

DRUGS (6)
  1. FLECAINIDE [Suspect]
     Active Substance: FLECAINIDE
     Indication: Supraventricular tachycardia
     Dosage: 130 MILLIGRAM/SQ. METER, ONCE A DAY
     Route: 065
  2. FLECAINIDE [Suspect]
     Active Substance: FLECAINIDE
     Dosage: TITRATED UP
     Route: 065
  3. FLECAINIDE [Suspect]
     Active Substance: FLECAINIDE
     Dosage: 82 MILLIGRAM/SQ. METER, ONCE A DAY
     Route: 065
  4. ADENOSINE [Concomitant]
     Active Substance: ADENOSINE
     Indication: Supraventricular tachycardia
     Dosage: UNK
     Route: 065
  5. EVEROLIMUS [Concomitant]
     Active Substance: EVEROLIMUS
     Indication: Rhabdomyoma
     Dosage: 0.125 MILLIGRAM, ONCE A DAY
     Route: 065
  6. PROPRANOLOL [Concomitant]
     Active Substance: PROPRANOLOL HYDROCHLORIDE
     Indication: Product used for unknown indication
     Dosage: 2 MILLIGRAM/SQ. METER, ONCE A DAY
     Route: 065

REACTIONS (2)
  - Supraventricular extrasystoles [Unknown]
  - Electrocardiogram QRS complex prolonged [Unknown]
